FAERS Safety Report 23645098 (Version 1)
Quarter: 2024Q1

REPORT INFORMATION
  Report Type: Spontaneous
  Country: FI (occurrence: FI)
  Receive Date: 20240318
  Receipt Date: 20240318
  Transmission Date: 20240410
  Serious: Yes (Hospitalization)
  Sender: FDA-Public Use
  Company Number: None

PATIENT
  Age: 43 Year
  Sex: Female

DRUGS (7)
  1. PACLITAXEL [Suspect]
     Active Substance: PACLITAXEL
     Indication: Invasive ductal breast carcinoma
     Dosage: 142.26 MG?FORM OF ADMIN: CONCENTRATE FOR SOLUTION FOR INFUSION
     Route: 042
     Dates: start: 20240229
  2. KYTRIL [Concomitant]
     Active Substance: GRANISETRON HYDROCHLORIDE
     Indication: Premedication
     Dosage: 2 MG X 1?ROUTE: ORAL?FORM: FILM-COATED TABLET
     Dates: start: 20240229
  3. CETIRIZINE HYDROCHLORIDE [Concomitant]
     Active Substance: CETIRIZINE HYDROCHLORIDE
     Indication: Premedication
     Dosage: 10 MG X 1?FORM: FILM COATED TABLET?ROUTE: ORAL
     Dates: start: 20240229
  4. DEXAMETASON ABCUR [Concomitant]
     Indication: Premedication
     Dosage: 10 MG X 1?FORM: TABLET?ROUTE: ORAL
     Dates: start: 20240229
  5. ESOMEPRAZOLE MAGNESIUM [Concomitant]
     Active Substance: ESOMEPRAZOLE\ESOMEPRAZOLE MAGNESIUM\ESOMEPRAZOLE MAGNESIUM DIHYDRATE
     Indication: Product used for unknown indication
     Dosage: 40 MG X 1 (DAILY)?FORM: GASTRO-RESISTANT TABLET?ROUTE: ORAL
     Dates: start: 20240122
  6. CARBOPLATIN [Concomitant]
     Active Substance: CARBOPLATIN
     Indication: Invasive ductal breast carcinoma
     Dosage: 206 MG?ROUTE: INTRAVENOUS?FORM: CONCENTRATE FOR SOLUTION FOR INFUSION
     Dates: start: 20240229
  7. PEPCID [Concomitant]
     Active Substance: FAMOTIDINE
     Indication: Premedication
     Dosage: 10 MG X 1?FORM: FILM-COATED TABLET?ROUTE: ORAL
     Dates: start: 20240229

REACTIONS (3)
  - Infusion related reaction [Recovered/Resolved]
  - Chest discomfort [Recovered/Resolved]
  - Erythema [Recovered/Resolved]

NARRATIVE: CASE EVENT DATE: 20240229
